FAERS Safety Report 4900386-5 (Version None)
Quarter: 2006Q1

REPORT INFORMATION
  Report Type: 
  Country: None (occurrence: None)
  Receive Date: 20060203
  Receipt Date: 20060127
  Transmission Date: 20060701
  Serious: Yes (Hospitalization)
  Sender: FDA-Public Use
  Company Number: CA-NOVOPROD-250426

PATIENT
  Age: 73 Year
  Sex: Male

DRUGS (1)
  1. LEVEMIR [Suspect]
     Indication: DIABETES MELLITUS
     Dosage: 18 IU, QD
     Dates: start: 20060111, end: 20060126

REACTIONS (3)
  - CHILLS [None]
  - HYPERGLYCAEMIA [None]
  - PYREXIA [None]
